FAERS Safety Report 24820485 (Version 1)
Quarter: 2025Q1

REPORT INFORMATION
  Report Type: Spontaneous
  Country: US (occurrence: US)
  Receive Date: 20250108
  Receipt Date: 20250108
  Transmission Date: 20250409
  Serious: No
  Sender: PHARMACEUTICAL ASSOC
  Company Number: US-PAIPHARMA-2024-US-004092

PATIENT
  Age: 63 Year
  Sex: Male
  Weight: 103.87 kg

DRUGS (3)
  1. unspecified medication for hypertension [Concomitant]
  2. unspecified medication for arthritis [Concomitant]
  3. NYSTATIN [Suspect]
     Active Substance: NYSTATIN
     Indication: Oral fungal infection
     Route: 048
     Dates: start: 20240119

REACTIONS (1)
  - Oral pain [Not Recovered/Not Resolved]

NARRATIVE: CASE EVENT DATE: 20240121
